FAERS Safety Report 20548783 (Version 1)
Quarter: 2022Q1

REPORT INFORMATION
  Report Type: Spontaneous
  Country: US (occurrence: US)
  Receive Date: 20220303
  Receipt Date: 20220303
  Transmission Date: 20220423
  Serious: No
  Sender: FDA-Public Use
  Company Number: US-ABBVIE-21K-163-3955555-00

PATIENT
  Age: 84 Year
  Sex: Male

DRUGS (2)
  1. TESTOSTERONE [Suspect]
     Active Substance: TESTOSTERONE
     Indication: Prostate cancer
     Route: 061
     Dates: start: 20210524
  2. LUPRON [Suspect]
     Active Substance: LEUPROLIDE ACETATE
     Indication: Product used for unknown indication
     Route: 065

REACTIONS (9)
  - Product dispensing error [Unknown]
  - Hypertrichosis [Unknown]
  - Blood testosterone increased [Unknown]
  - Weight decreased [Unknown]
  - Anxiety [Unknown]
  - Drug ineffective [Unknown]
  - Swelling [Unknown]
  - Laboratory test abnormal [Unknown]
  - Prostatic specific antigen increased [Not Recovered/Not Resolved]

NARRATIVE: CASE EVENT DATE: 20210101
